FAERS Safety Report 15256550 (Version 1)
Quarter: 2018Q3

REPORT INFORMATION
  Report Type: Spontaneous
  Country: US (occurrence: US)
  Receive Date: 20180718
  Receipt Date: 20180718
  Transmission Date: 20181010
  Serious: Yes (Hospitalization)
  Sender: FDA-Public Use
  Company Number: None

PATIENT
  Age: 32 Year
  Sex: Male

DRUGS (1)
  1. LOVENOX [Suspect]
     Active Substance: ENOXAPARIN SODIUM
     Route: 058

REACTIONS (8)
  - International normalised ratio decreased [None]
  - Syncope [None]
  - Dizziness [None]
  - Injection site pruritus [None]
  - Injection site irritation [None]
  - Injection site rash [None]
  - Blood pressure increased [None]
  - Injection site erythema [None]
